FAERS Safety Report 7196979-8 (Version None)
Quarter: 2010Q4

REPORT INFORMATION
  Report Type: 
  Country: None (occurrence: None)
  Receive Date: 20101224
  Receipt Date: 20101210
  Transmission Date: 20110411
  Serious: Yes (Hospitalization)
  Sender: FDA-Public Use
  Company Number: US-ROCHE-748494

PATIENT
  Sex: Female

DRUGS (11)
  1. BEVACIZUMAB [Suspect]
     Indication: ADENOCARCINOMA
     Route: 042
     Dates: start: 20101125
  2. CAPECITABINE [Suspect]
     Indication: ADENOCARCINOMA
     Dosage: FREQUENCY: DAYS 1-14 (21 CYCLE)
     Route: 048
     Dates: start: 20100525
  3. CARBOPLATIN [Suspect]
     Indication: ADENOCARCINOMA
     Dosage: DOSE: AUC 6
     Route: 042
     Dates: start: 20101125
  4. ZOFRAN [Concomitant]
     Route: 042
  5. COMPAZINE [Concomitant]
  6. ATIVAN [Concomitant]
     Route: 048
  7. BENICAR [Concomitant]
  8. CYTOMEL [Concomitant]
  9. VIVELLE [Concomitant]
  10. SYNTHROID [Concomitant]
     Route: 048
  11. PRILOSEC [Concomitant]

REACTIONS (7)
  - ANXIETY [None]
  - CHILLS [None]
  - DIARRHOEA [None]
  - NAUSEA [None]
  - PYREXIA [None]
  - REGURGITATION [None]
  - WEIGHT DECREASED [None]
